FAERS Safety Report 5371489-9 (Version None)
Quarter: 2007Q2

REPORT INFORMATION
  Report Type: 
  Country: None (occurrence: None)
  Receive Date: 20070622
  Receipt Date: 20070615
  Transmission Date: 20071010
  Serious: Yes (Hospitalization)
  Sender: FDA-Public Use
  Company Number: 2007BI009498

PATIENT
  Age: 64 Year
  Sex: Female

DRUGS (5)
  1. NATALIZUMAB [Suspect]
     Indication: MULTIPLE SCLEROSIS
     Dosage: 300 MG;QM;IV
     Route: 042
     Dates: start: 20070201, end: 20070301
  2. LEXAPRO [Concomitant]
  3. ARICEPT [Concomitant]
  4. TRILEPTAL [Concomitant]
  5. DARVOCET [Concomitant]

REACTIONS (7)
  - ASTHENIA [None]
  - COGNITIVE DISORDER [None]
  - CYSTITIS [None]
  - FALL [None]
  - MULTIPLE SCLEROSIS [None]
  - TRIGEMINAL NEURALGIA [None]
  - URINARY TRACT INFECTION [None]
